FAERS Safety Report 14860286 (Version 2)
Quarter: 2018Q2

REPORT INFORMATION
  Report Type: Spontaneous
  Country: US (occurrence: US)
  Receive Date: 20180508
  Receipt Date: 20180530
  Transmission Date: 20180711
  Serious: Yes (Hospitalization, Other)
  Sender: FDA-Public Use
  Company Number: US-PFIZER INC-2018180990

PATIENT
  Age: 73 Year
  Sex: Female

DRUGS (1)
  1. METHOTREXATE SODIUM. [Suspect]
     Active Substance: METHOTREXATE SODIUM
     Dosage: UNK

REACTIONS (7)
  - Road traffic accident [Unknown]
  - Fall [Unknown]
  - Pleural effusion [Unknown]
  - Pneumonitis [Unknown]
  - Hip fracture [Unknown]
  - Multiple fractures [Unknown]
  - Coma [Unknown]

NARRATIVE: CASE EVENT DATE: 2016
